FAERS Safety Report 13630179 (Version 1)
Quarter: 2017Q2

REPORT INFORMATION
  Report Type: Spontaneous
  Country: FR (occurrence: FR)
  Receive Date: 20170608
  Receipt Date: 20170608
  Transmission Date: 20170830
  Serious: Yes (Other)
  Sender: FDA-Public Use
  Company Number: FR-BAYER-2017-110241

PATIENT
  Age: 42 Year
  Sex: Female

DRUGS (1)
  1. MIRENA [Suspect]
     Active Substance: LEVONORGESTREL
     Indication: CONTRACEPTION
     Dosage: 20 MCG/24HR, CONT
     Route: 015
     Dates: start: 20121108

REACTIONS (8)
  - Pelvic pain [Recovering/Resolving]
  - Depression [Recovering/Resolving]
  - Vertigo [Recovering/Resolving]
  - Alopecia [Recovering/Resolving]
  - Loss of libido [Recovering/Resolving]
  - Irritability [Recovering/Resolving]
  - Weight increased [Recovering/Resolving]
  - Back pain [Recovering/Resolving]

NARRATIVE: CASE EVENT DATE: 201212
